FAERS Safety Report 4988244-1 (Version None)
Quarter: 2006Q2

REPORT INFORMATION
  Report Type: 
  Country: None (occurrence: None)
  Receive Date: 20060425
  Receipt Date: 20060411
  Transmission Date: 20061013
  Serious: Yes (Death, Hospitalization, Other)
  Sender: FDA-Public Use
  Company Number: 2003115772

PATIENT
  Age: 73 Year
  Sex: Female

DRUGS (10)
  1. LIPITOR [Suspect]
     Indication: HYPERCHOLESTEROLAEMIA
     Dosage: 10 MG (10 MG, 1 IN 1 D), ORAL
     Route: 048
     Dates: start: 20020101, end: 20030801
  2. DOXAZOSIN (DOXAZOSIN) [Concomitant]
  3. BENDROFLUAZIDE (BENDROFLUMETHIAZIDE) [Concomitant]
  4. AMLODIPINE [Concomitant]
  5. RAMIPRIL [Concomitant]
  6. ASPIRIN [Concomitant]
  7. CO-PROXAMOL (DEXTROPROPOXYPHENE HYDROCHLORIDE, PARACETAMOL) [Concomitant]
  8. LANSOPRAZOLE [Concomitant]
  9. GAVISCON [Concomitant]
  10. BACTRIM [Concomitant]

REACTIONS (5)
  - CHOLESTASIS [None]
  - CONVULSION [None]
  - HEPATIC FAILURE [None]
  - HEPATITIS ACUTE [None]
  - RESPIRATORY ARREST [None]
